FAERS Safety Report 10691152 (Version 1)
Quarter: 2015Q1

REPORT INFORMATION
  Report Type: Spontaneous
  Country: US (occurrence: US)
  Receive Date: 20150105
  Receipt Date: 20150105
  Transmission Date: 20150720
  Serious: Yes (Other)
  Sender: FDA-Public Use
  Company Number: US-PFIZER INC-2014361730

PATIENT
  Sex: Female

DRUGS (1)
  1. PROCARDIA [Suspect]
     Active Substance: NIFEDIPINE
     Dosage: UNK

REACTIONS (9)
  - Anaphylactic shock [Unknown]
  - Arthropathy [Unknown]
  - Hypertension [Unknown]
  - Drug hypersensitivity [Unknown]
  - Gait disturbance [Unknown]
  - Heart rate increased [Unknown]
  - Oedema [Unknown]
  - Joint swelling [Unknown]
  - Dyspnoea [Unknown]
